FAERS Safety Report 19499874 (Version 7)
Quarter: 2024Q1

REPORT INFORMATION
  Report Type: Report from Study
  Country: AT (occurrence: AT)
  Receive Date: 20210707
  Receipt Date: 20240221
  Transmission Date: 20240410
  Serious: Yes (Other)
  Sender: FDA-Public Use
  Company Number: AT-CELLTRION INC.-2019AT028783

PATIENT

DRUGS (79)
  1. ONTRUZANT [Suspect]
     Active Substance: TRASTUZUMAB-DTTB
     Indication: Breast cancer metastatic
     Dosage: 450 MG, EVERY 3 WEEKS
     Route: 042
     Dates: start: 20200515, end: 20210402
  2. ONTRUZANT [Suspect]
     Active Substance: TRASTUZUMAB-DTTB
     Dosage: 408 MG, EVERY 3 WEEKS
     Route: 042
     Dates: start: 20181219, end: 20200424
  3. ONTRUZANT [Suspect]
     Active Substance: TRASTUZUMAB-DTTB
     Dosage: 408 MG, EVERY 3 WEEKS (ON 24/APR/2020, MOST RECENT DOSE)
     Route: 042
     Dates: start: 20181219, end: 20200424
  4. ONTRUZANT [Suspect]
     Active Substance: TRASTUZUMAB-DTTB
     Dosage: 438 MG, EVERY 3 WEEKS (MOST RECENT DOSE PRIOR TO THE EVENT: 19/DEC/2018)
     Route: 042
     Dates: start: 20181017, end: 20181017
  5. ONTRUZANT [Suspect]
     Active Substance: TRASTUZUMAB-DTTB
     Dosage: 420 MG, EVERY 3 WEEKS
     Route: 042
     Dates: start: 20181128, end: 20181128
  6. ONTRUZANT [Suspect]
     Active Substance: TRASTUZUMAB-DTTB
     Dosage: 420 MG, EVERY 3 WEEKS
     Route: 042
     Dates: start: 20181128, end: 20181128
  7. HERCEPTIN [Suspect]
     Active Substance: TRASTUZUMAB
     Indication: Breast cancer metastatic
     Dosage: 712 MG, EVERY 3 WEEKS (MOST RECENT DOSE OF TRASTUZUMAB PRIOR TO THE EVENT: 07/NOV/2018)
     Route: 042
     Dates: start: 20170324, end: 20170324
  8. HERCEPTIN [Suspect]
     Active Substance: TRASTUZUMAB
     Dosage: 474 MG, EVERY 3 WEEKS
     Route: 042
     Dates: start: 20171213, end: 20180514
  9. HERCEPTIN [Suspect]
     Active Substance: TRASTUZUMAB
     Dosage: 534 MG, EVERY 3 WEEKS
     Route: 042
     Dates: start: 20170714, end: 20170804
  10. HERCEPTIN [Suspect]
     Active Substance: TRASTUZUMAB
     Dosage: 420 MG, EVERY 3 WEEKS
     Route: 042
     Dates: start: 20181107, end: 20181107
  11. HERCEPTIN [Suspect]
     Active Substance: TRASTUZUMAB
     Dosage: 450 MG, EVERY 3 WEEKS
     Route: 042
     Dates: start: 20180723, end: 20180904
  12. HERCEPTIN [Suspect]
     Active Substance: TRASTUZUMAB
     Dosage: 534 MG, EVERY 3 WEEKS
     Route: 042
     Dates: start: 20170414, end: 20170619
  13. HERCEPTIN [Suspect]
     Active Substance: TRASTUZUMAB
     Dosage: 438 MG, EVERY 3 WEEKS
     Route: 042
     Dates: start: 20180926, end: 20180926
  14. HERCEPTIN [Suspect]
     Active Substance: TRASTUZUMAB
     Dosage: 462 MG, EVERY 3 WEEKS
     Route: 042
     Dates: start: 20180608, end: 20180608
  15. HERCEPTIN [Suspect]
     Active Substance: TRASTUZUMAB
     Dosage: 480 MG, EVERY 3 WEEKS
     Route: 042
     Dates: start: 20170828, end: 20171030
  16. TRASTUZUMAB [Suspect]
     Active Substance: TRASTUZUMAB
     Indication: Breast cancer metastatic
     Dosage: 712 MG, EVERY 3 WEEKS (MOST RECENT DOSE OF TRASTUZUMAB PRIOR TO THE EVENT: 07/NOV/2018)
     Route: 042
     Dates: start: 20170324
  17. TRASTUZUMAB [Suspect]
     Active Substance: TRASTUZUMAB
     Dosage: 474 MG, EVERY 3 WEEKS
     Route: 042
     Dates: start: 20171213, end: 20180514
  18. TRASTUZUMAB [Suspect]
     Active Substance: TRASTUZUMAB
     Dosage: 534 MG, EVERY 3 WEEKS
     Route: 042
     Dates: start: 20170414, end: 20170619
  19. TRASTUZUMAB [Suspect]
     Active Substance: TRASTUZUMAB
     Dosage: 534 MG, EVERY 3 WEEKS
     Route: 042
     Dates: start: 20170714, end: 20170804
  20. TRASTUZUMAB [Suspect]
     Active Substance: TRASTUZUMAB
     Dosage: 420 MG, EVERY 3 WEEKS
     Route: 042
     Dates: start: 20181107, end: 20181107
  21. TRASTUZUMAB [Suspect]
     Active Substance: TRASTUZUMAB
     Dosage: 480 MG, EVERY 3 WEEKS
     Route: 042
     Dates: start: 20170828, end: 20171030
  22. TRASTUZUMAB [Suspect]
     Active Substance: TRASTUZUMAB
     Dosage: 450 MG, EVERY 3 WEEKS
     Route: 042
     Dates: start: 20180723, end: 20180904
  23. TRASTUZUMAB [Suspect]
     Active Substance: TRASTUZUMAB
     Dosage: 438 MG, EVERY 3 WEEKS
     Route: 042
     Dates: start: 20180926, end: 20180926
  24. TRASTUZUMAB [Suspect]
     Active Substance: TRASTUZUMAB
     Dosage: 462 MG, EVERY 3 WEEKS
     Route: 042
     Dates: start: 20180608, end: 20180608
  25. TRASTUZUMAB [Suspect]
     Active Substance: TRASTUZUMAB
     Dosage: 420 MG, EVERY 3 WEEKS
     Route: 042
     Dates: start: 20181128, end: 20181128
  26. TRASTUZUMAB [Suspect]
     Active Substance: TRASTUZUMAB
     Dosage: 408 MG, EVERY 3 WEEKS (ON 24/APR/2020, MOST RECENT DOSE)
     Route: 042
     Dates: start: 20181219
  27. TRASTUZUMAB [Suspect]
     Active Substance: TRASTUZUMAB
     Dosage: 450 MG, EVERY 3 WEEKS
     Route: 042
     Dates: start: 20200515, end: 20210402
  28. TRASTUZUMAB [Suspect]
     Active Substance: TRASTUZUMAB
     Dosage: 420 MG, EVERY 3 WEEKS
     Route: 042
     Dates: start: 20181128, end: 20181128
  29. TRASTUZUMAB [Suspect]
     Active Substance: TRASTUZUMAB
     Dosage: 408 MG, EVERY 3 WEEKS
     Route: 042
     Dates: start: 20181219, end: 20200424
  30. TRASTUZUMAB [Suspect]
     Active Substance: TRASTUZUMAB
     Dosage: 438 MG, EVERY 3 WEEKS (MOST RECENT DOSE PRIOR TO THE EVENT: 19/DEC/2018)
     Route: 042
     Dates: start: 20181017, end: 20181017
  31. ARIMIDEX [Suspect]
     Active Substance: ANASTROZOLE
     Indication: Breast cancer metastatic
     Dosage: 1 MG, QD
     Route: 048
     Dates: start: 20170324, end: 20180514
  32. DENOSUMAB [Suspect]
     Active Substance: DENOSUMAB
     Indication: Breast cancer metastatic
     Dosage: 120 MG, MONTHLY
     Route: 058
     Dates: start: 20210302
  33. DENOSUMAB [Suspect]
     Active Substance: DENOSUMAB
     Dosage: 120 MG, MONTHLY
     Route: 058
     Dates: start: 20200310, end: 20201127
  34. DENOSUMAB [Suspect]
     Active Substance: DENOSUMAB
     Dosage: 120 MG, MONTHLY
     Route: 058
     Dates: start: 20170505, end: 20180329
  35. TAXOTERE [Suspect]
     Active Substance: DOCETAXEL
     Indication: Breast cancer metastatic
     Dosage: 137 MG, EVERY 3 WEEKS MOST RECENT DOSE OF DOCETAXEL PRIOR TO THE EVENT: 17/OCT/2018
     Route: 042
     Dates: start: 20180608, end: 20180608
  36. TAXOTERE [Suspect]
     Active Substance: DOCETAXEL
     Dosage: 134.32 MG, EVERY 3 WEEKS
     Route: 042
     Dates: start: 20180723, end: 20180904
  37. TAXOTERE [Suspect]
     Active Substance: DOCETAXEL
     Dosage: 132.78 MG, EVERY 3 WEEKS
     Route: 042
     Dates: start: 20180926, end: 20180926
  38. TAXOTERE [Suspect]
     Active Substance: DOCETAXEL
     Dosage: 106.22 MG, EVERY 3 WEEKS
     Route: 042
     Dates: start: 20181017, end: 20181017
  39. FASLODEX [Suspect]
     Active Substance: FULVESTRANT
     Indication: Breast cancer metastatic
     Dosage: 500 MG, EVERY 2 WEEKS
     Route: 030
     Dates: start: 20181128, end: 20181226
  40. FASLODEX [Suspect]
     Active Substance: FULVESTRANT
     Dosage: 500 MG, EVERY 4 WEEKS
     Route: 030
     Dates: start: 20181226
  41. PERJETA [Suspect]
     Active Substance: PERTUZUMAB
     Indication: Breast cancer metastatic
     Dosage: 840 MG, EVERY 3 WEEKS (MOST RECENT DOSE OF PERTUZUMAB PRIOR TO THE EVENT: 23/JUL/2018)
     Route: 042
     Dates: start: 20170324, end: 20170324
  42. PERJETA [Suspect]
     Active Substance: PERTUZUMAB
     Dosage: 420 MG, EVERY 3 WEEKS
     Route: 042
     Dates: start: 20180723, end: 20210402
  43. PERJETA [Suspect]
     Active Substance: PERTUZUMAB
     Dosage: 420 MG, EVERY 3 WEEKS
     Route: 042
     Dates: start: 20171213, end: 20180608
  44. PERJETA [Suspect]
     Active Substance: PERTUZUMAB
     Dosage: 420 MG, EVERY 3 WEEKS
     Route: 042
     Dates: start: 20171213, end: 20180608
  45. PERJETA [Suspect]
     Active Substance: PERTUZUMAB
     Dosage: 420 MG, EVERY 3 WEEKS
     Route: 042
     Dates: start: 20170714, end: 20171030
  46. PERJETA [Suspect]
     Active Substance: PERTUZUMAB
     Dosage: 420 MG, EVERY 3 WEEKS
     Route: 042
     Dates: start: 20170414, end: 20170619
  47. ASPIRIN [Concomitant]
     Active Substance: ASPIRIN
     Indication: Hypertension
     Dosage: ONGOING = NOT CHECKED
     Dates: start: 20171120, end: 20190615
  48. AMLODIPINE [Concomitant]
     Active Substance: AMLODIPINE BESYLATE
  49. AVELOX [Concomitant]
     Active Substance: MOXIFLOXACIN HYDROCHLORIDE
  50. CALCIUM CARBONATE\CHOLECALCIFEROL [Concomitant]
     Active Substance: CALCIUM CARBONATE\CHOLECALCIFEROL
     Dosage: ONGOING = CHECKED
     Dates: start: 20170505, end: 20190615
  51. CLINDAMYCIN [Concomitant]
     Active Substance: CLINDAMYCIN
  52. BISOPROLOL FUMARATE [Concomitant]
     Active Substance: BISOPROLOL FUMARATE
     Indication: Hypertension
     Dosage: ONGOING = CHECKED
     Dates: start: 20180814
  53. CORTISONE ACETATE [Concomitant]
     Active Substance: CORTISONE ACETATE
  54. DEXABENE [Concomitant]
     Dosage: ONGOING = CHECKED
     Dates: start: 20181107
  55. DIMETHINDENE [Concomitant]
     Active Substance: DIMETHINDENE
     Dosage: ONGOING = CHECKED
     Dates: start: 20170414
  56. FERINJECT [Concomitant]
     Active Substance: FERRIC CARBOXYMALTOSE
  57. DEXAMETHASONE [Concomitant]
     Active Substance: DEXAMETHASONE
     Dosage: ONGOING = CHECKED
     Dates: start: 20181017
  58. DAPAGLIFLOZIN [Concomitant]
     Active Substance: DAPAGLIFLOZIN
  59. FOSTER [Concomitant]
     Active Substance: BECLOMETHASONE\FORMOTEROL
     Indication: Dyspnoea
     Dosage: ONGOING = CHECKED
     Dates: start: 20171120
  60. INSPRA [Concomitant]
     Active Substance: EPLERENONE
  61. KYTRIL [Concomitant]
     Active Substance: GRANISETRON HYDROCHLORIDE
     Dosage: ONGOING = CHECKED
     Dates: start: 20180608
  62. LANNAPRIL PLUS [Concomitant]
  63. LOVENOX [Concomitant]
     Active Substance: ENOXAPARIN SODIUM
  64. MEROPENEM [Concomitant]
     Active Substance: MEROPENEM
  65. ACETAMINOPHEN [Concomitant]
     Active Substance: ACETAMINOPHEN
     Dosage: ONGOING = CHECKED
     Dates: start: 20180715
  66. POLYETHYLENE GLYCOL 3350\POTASSIUM CHLORIDE\SODIUM BICARBONATE\SODIUM [Concomitant]
     Active Substance: POLYETHYLENE GLYCOL 3350\POTASSIUM CHLORIDE\SODIUM BICARBONATE\SODIUM CHLORIDE
     Dosage: ONGOING = CHECKED
     Dates: start: 20180715
  67. NOVALGIN (METAMIZOLE SODIUM) [Concomitant]
     Active Substance: METAMIZOLE SODIUM
     Indication: Pain
     Dosage: ONGOING = CHECKED
     Dates: start: 20180715
  68. PANTOPRAZOLE [Concomitant]
     Active Substance: PANTOPRAZOLE
     Dosage: ONGOING = CHECKED
  69. RAMIPRIL [Concomitant]
     Active Substance: RAMIPRIL
     Dosage: UNK
  70. DEXIBUPROFEN [Concomitant]
     Active Substance: DEXIBUPROFEN
  71. TORSEMIDE [Concomitant]
     Active Substance: TORSEMIDE
     Indication: Hypertension
     Dosage: ONGOING = CHECKED
     Dates: start: 20180214, end: 20190615
  72. RAMIPRIL [Concomitant]
     Active Substance: RAMIPRIL
  73. HYDROCHLOROTHIAZIDE\RAMIPRIL [Concomitant]
     Active Substance: HYDROCHLOROTHIAZIDE\RAMIPRIL
     Dosage: UNK
     Dates: end: 20200424
  74. RANITIDINE HYDROCHLORIDE [Concomitant]
     Active Substance: RANITIDINE HYDROCHLORIDE
     Dosage: ONGOING = CHECKED
     Dates: start: 20170414, end: 20191119
  75. METHYLPREDNISOLONE [Concomitant]
     Active Substance: METHYLPREDNISOLONE
  76. VIBRAMYCIN [Concomitant]
     Active Substance: DOXYCYCLINE
  77. XGEVA [Concomitant]
     Active Substance: DENOSUMAB
     Dosage: UNK
     Dates: start: 20181017, end: 20201127
  78. DEXAMETHASONE [Concomitant]
     Active Substance: DEXAMETHASONE
  79. ENTRESTO [Concomitant]
     Active Substance: SACUBITRIL\VALSARTAN
     Dosage: 1 MG

REACTIONS (2)
  - Pulmonary oedema [Recovered/Resolved]
  - Underdose [Unknown]

NARRATIVE: CASE EVENT DATE: 20190704
